FAERS Safety Report 8990576 (Version 2)
Quarter: 2013Q1

REPORT INFORMATION
  Report Type: Spontaneous
  Country: US (occurrence: US)
  Receive Date: 20121228
  Receipt Date: 20130228
  Transmission Date: 20140127
  Serious: Yes (Hospitalization, Other)
  Sender: FDA-Public Use
  Company Number: US-SANOFI-AVENTIS-2012SA094860

PATIENT
  Age: 71 Year
  Sex: Female

DRUGS (4)
  1. LANTUS [Suspect]
     Dosage: DOSE:30 UNIT(S)
     Route: 058
     Dates: start: 201110
  2. LANTUS [Suspect]
     Dosage: DOSE:40 UNIT(S)
     Route: 058
  3. HUMULIN R [Concomitant]
  4. ANTIBIOTICS [Concomitant]

REACTIONS (5)
  - Toe amputation [Unknown]
  - Diabetic foot [Unknown]
  - Iron deficiency anaemia [Not Recovered/Not Resolved]
  - Hypersensitivity [Unknown]
  - Blood glucose decreased [Unknown]
